FAERS Safety Report 9161519 (Version 3)
Quarter: 2014Q3

REPORT INFORMATION
  Report Type: Spontaneous
  Country: US (occurrence: US)
  Receive Date: 20130313
  Receipt Date: 20140823
  Transmission Date: 20150326
  Serious: Yes (Hospitalization, Other)
  Sender: FDA-Public Use
  Company Number: US-009507513-1303USA003939

PATIENT
  Sex: Female
  Weight: 65.76 kg

DRUGS (4)
  1. NUVARING [Suspect]
     Active Substance: ETHINYL ESTRADIOL\ETONOGESTREL
     Indication: CONTRACEPTION
     Dosage: UNK
     Route: 067
     Dates: start: 20100303, end: 20110418
  2. SPIRONOLACTONE. [Concomitant]
     Active Substance: SPIRONOLACTONE
     Indication: ACNE
     Dosage: 100 MG, QD
     Route: 048
     Dates: start: 200805
  3. NYSTATIN. [Concomitant]
     Active Substance: NYSTATIN
     Indication: ACNE
     Dosage: 500000 UNIT, QD
     Route: 048
     Dates: start: 200805
  4. DOXYCYCLINE. [Concomitant]
     Active Substance: DOXYCYCLINE
     Indication: ACNE
     Dosage: 100 MG, QD
     Route: 048
     Dates: start: 200805

REACTIONS (13)
  - Thromboembolectomy [Unknown]
  - Deep vein thrombosis [Unknown]
  - Depression [Unknown]
  - Hypoaesthesia oral [Unknown]
  - Vena cava filter insertion [Unknown]
  - Atrial septal defect repair [Unknown]
  - Medical device removal [Unknown]
  - Thrombosis [Unknown]
  - Adverse drug reaction [Unknown]
  - Cardiac operation [Unknown]
  - Pulmonary embolism [Recovered/Resolved]
  - Joint injury [Unknown]
  - Pulmonary infarction [Recovered/Resolved]

NARRATIVE: CASE EVENT DATE: 201102
